FAERS Safety Report 6793306-2 (Version None)
Quarter: 2010Q2

REPORT INFORMATION
  Report Type: 
  Country: None (occurrence: None)
  Receive Date: 20100624
  Receipt Date: 20091123
  Transmission Date: 20101027
  Serious: Yes (Death, Hospitalization, Other)
  Sender: FDA-Public Use
  Company Number: US-MYLANLABS-2009S1019611

PATIENT
  Age: 72 Year
  Sex: Male

DRUGS (9)
  1. CLOZAPINE [Suspect]
     Indication: HALLUCINATION
     Route: 048
     Dates: start: 20081001, end: 20091001
  2. CLOZAPINE [Suspect]
     Indication: DELUSION
     Route: 048
     Dates: start: 20081001, end: 20091001
  3. COMTAN [Concomitant]
  4. SINEMET [Concomitant]
  5. AZILECT /01759901/ [Concomitant]
  6. EXELON [Concomitant]
  7. BACLOFEN [Concomitant]
  8. XANAX [Concomitant]
  9. FLOMAX [Concomitant]

REACTIONS (2)
  - DEHYDRATION [None]
  - PARKINSON'S DISEASE [None]
